FAERS Safety Report 9348011 (Version 1)
Quarter: 2013Q2

REPORT INFORMATION
  Report Type: Spontaneous
  Country: US (occurrence: None)
  Receive Date: 20130612
  Receipt Date: 20130612
  Transmission Date: 20140414
  Serious: Yes (Life-Threatening)
  Sender: FDA-Public Use
  Company Number: None

PATIENT
  Age: 86 Year
  Sex: Male
  Weight: 66.4 kg

DRUGS (2)
  1. WARFARIN [Suspect]
     Indication: ATRIAL FIBRILLATION
     Route: 048
     Dates: start: 20121214, end: 20130118
  2. WARFARIN [Suspect]
     Indication: THROMBOSIS
     Route: 048
     Dates: start: 20121214, end: 20130118

REACTIONS (2)
  - Subdural haematoma [None]
  - Fall [None]
